FAERS Safety Report 13525070 (Version 1)
Quarter: 2017Q2

REPORT INFORMATION
  Report Type: Spontaneous
  Country: US (occurrence: US)
  Receive Date: 20170508
  Receipt Date: 20170508
  Transmission Date: 20170830
  Serious: No
  Sender: FDA-Public Use
  Company Number: US-ROCHE-1190974

PATIENT
  Sex: Female

DRUGS (7)
  1. DIOVAN HCT [Concomitant]
     Active Substance: HYDROCHLOROTHIAZIDE\VALSARTAN
  2. AVASTIN [Suspect]
     Active Substance: BEVACIZUMAB
     Indication: EYE NAEVUS
     Route: 031
  3. LIPITOR [Concomitant]
     Active Substance: ATORVASTATIN CALCIUM
  4. ATENOLOL. [Concomitant]
     Active Substance: ATENOLOL
  5. COUMADIN [Concomitant]
     Active Substance: WARFARIN SODIUM
  6. CHOLESTYRAMINE. [Concomitant]
     Active Substance: CHOLESTYRAMINE
  7. ALLOPURINOL. [Concomitant]
     Active Substance: ALLOPURINOL
     Route: 065

REACTIONS (4)
  - Drug ineffective [Unknown]
  - Metamorphopsia [Unknown]
  - Eye naevus [Unknown]
  - Retinal detachment [Unknown]
